FAERS Safety Report 5522463-0 (Version None)
Quarter: 2007Q4

REPORT INFORMATION
  Report Type: 
  Country: None (occurrence: None)
  Receive Date: 20071120
  Receipt Date: 20071112
  Transmission Date: 20080405
  Serious: Yes (Hospitalization)
  Sender: FDA-Public Use
  Company Number: FR-SANOFI-SYNTHELABO-A02200703389

PATIENT
  Age: 66 Year
  Sex: Female

DRUGS (1)
  1. PLAQUENIL [Suspect]
     Indication: MUSCULOSKELETAL PAIN
     Route: 048
     Dates: start: 20060619, end: 20070701

REACTIONS (1)
  - PANCREATITIS [None]
